FAERS Safety Report 5879190-X (Version None)
Quarter: 2008Q3

REPORT INFORMATION
  Report Type: 
  Country: None (occurrence: None)
  Receive Date: 20080912
  Receipt Date: 20080912
  Transmission Date: 20090109
  Serious: Yes (Death, Life-Threatening, Hospitalization)
  Sender: FDA-Public Use
  Company Number: None

PATIENT
  Sex: Male
  Weight: 83.4619 kg

DRUGS (1)
  1. HEPARIN [Suspect]
     Indication: PERITONEAL DIALYSIS
     Dosage: 1000USP UNITS/1ML 30 ML MULTIP 3.0ML - PER DAY SQ
     Route: 058
     Dates: start: 20071101, end: 20080316

REACTIONS (5)
  - CARDIAC ARREST [None]
  - DYSKINESIA [None]
  - PHARMACEUTICAL PRODUCT COMPLAINT [None]
  - POOR QUALITY DRUG ADMINISTERED [None]
  - SYNCOPE [None]
